FAERS Safety Report 10945765 (Version 1)
Quarter: 2015Q1

REPORT INFORMATION
  Report Type: Spontaneous
  Country: US (occurrence: None)
  Receive Date: 20150212
  Receipt Date: 20150212
  Transmission Date: 20150721
  Serious: No
  Sender: FDA-Public Use
  Company Number: TPA2011A00949

PATIENT
  Age: 61 Year
  Sex: Male
  Weight: 99.79 kg

DRUGS (1)
  1. ULORIC [Suspect]
     Active Substance: FEBUXOSTAT
     Indication: GOUT
     Dates: start: 20110226, end: 20110226

REACTIONS (3)
  - Swelling face [None]
  - Angioedema [None]
  - Dysphagia [None]
